FAERS Safety Report 6160375-2 (Version None)
Quarter: 2009Q2

REPORT INFORMATION
  Report Type: 
  Country: None (occurrence: None)
  Receive Date: 20090415
  Receipt Date: 20090415
  Transmission Date: 20091009
  Serious: No
  Sender: FDA-Public Use
  Company Number: None

PATIENT
  Age: 71 Year
  Sex: Female
  Weight: 65.7716 kg

DRUGS (1)
  1. METOCLOPRAMIDE HYDROCHLORIDE [Suspect]
     Indication: IMPAIRED GASTRIC EMPTYING
     Dosage: 5 MG FOUR TIMES DAILY PO
     Route: 048
     Dates: start: 20080806, end: 20081127

REACTIONS (6)
  - AGITATION [None]
  - ANOREXIA [None]
  - FEELING ABNORMAL [None]
  - NAUSEA [None]
  - SPEECH DISORDER [None]
  - TREMOR [None]
